FAERS Safety Report 4349514-3 (Version None)
Quarter: 2004Q1

REPORT INFORMATION
  Report Type: 
  Country: None (occurrence: None)
  Receive Date: 20040325
  Receipt Date: 20040126
  Transmission Date: 20041129
  Serious: Yes (Other)
  Sender: FDA-Public Use
  Company Number: USA031051110

PATIENT
  Age: 49 Year
  Sex: Female

DRUGS (5)
  1. FORTEO [Suspect]
     Indication: OSTEOPOROSIS
     Dosage: 20 UG/DAY
     Dates: start: 20031015, end: 20031118
  2. MULTIVITAMIN [Concomitant]
  3. FEMHRT [Concomitant]
  4. MELATONIN [Concomitant]
  5. ASPIRIN [Concomitant]

REACTIONS (6)
  - ARTHRALGIA [None]
  - DIZZINESS [None]
  - FALL [None]
  - PAIN IN EXTREMITY [None]
  - SYNCOPE [None]
  - VERTIGO [None]
